FAERS Safety Report 25787873 (Version 1)
Quarter: 2025Q3

REPORT INFORMATION
  Report Type: Spontaneous
  Country: EU (occurrence: EU)
  Receive Date: 20250910
  Receipt Date: 20250910
  Transmission Date: 20251021
  Serious: Yes (Other)
  Sender: SANOFI AVENTIS
  Company Number: EU-BIOVITRUM-2025-DE-012170

PATIENT
  Age: 52 Year
  Sex: Male
  Weight: 81 kg

DRUGS (4)
  1. ELOCTA [Suspect]
     Active Substance: EFMOROCTOCOG ALFA
     Indication: Factor VIII deficiency
     Dosage: 3000 IU, Q3D
     Route: 065
     Dates: start: 201705, end: 202201
  2. ELOCTA [Suspect]
     Active Substance: EFMOROCTOCOG ALFA
     Indication: Factor VIII deficiency
     Dosage: 3000 IU, Q3D
     Route: 065
     Dates: start: 201705, end: 202201
  3. ELOCTA [Suspect]
     Active Substance: EFMOROCTOCOG ALFA
     Dosage: 3000 IU, Q3D
     Route: 065
     Dates: start: 202411, end: 202502
  4. ELOCTA [Suspect]
     Active Substance: EFMOROCTOCOG ALFA
     Dosage: 3000 IU, Q3D
     Route: 065
     Dates: start: 202411, end: 202502

REACTIONS (3)
  - Haemophilic arthropathy [Recovering/Resolving]
  - Condition aggravated [Recovering/Resolving]
  - Haemarthrosis [Recovering/Resolving]
